FAERS Safety Report 10066255 (Version 1)
Quarter: 2014Q2

REPORT INFORMATION
  Report Type: Spontaneous
  Country: US (occurrence: None)
  Receive Date: 20140402
  Receipt Date: 20140402
  Transmission Date: 20141212
  Serious: Yes (Other)
  Sender: FDA-Public Use
  Company Number: 2013STPI000337

PATIENT
  Sex: 0

DRUGS (1)
  1. ONCASPAR [Suspect]
     Indication: LYMPHOCYTIC LEUKAEMIA
     Route: 042
     Dates: start: 20130629, end: 20130629

REACTIONS (1)
  - Anaphylactic reaction [None]
